FAERS Safety Report 18296420 (Version 1)
Quarter: 2020Q3

REPORT INFORMATION
  Report Type: Spontaneous
  Country: CA (occurrence: CA)
  Receive Date: 20200922
  Receipt Date: 20200922
  Transmission Date: 20201103
  Serious: Yes (Other)
  Sender: FDA-Public Use
  Company Number: CA-PFIZER INC-2017344026

PATIENT
  Age: 65 Year
  Sex: Female

DRUGS (13)
  1. SANDOSTATIN [Concomitant]
     Active Substance: OCTREOTIDE ACETATE
     Dosage: 40 MG, MONTHLY
  2. LIPITOR [Concomitant]
     Active Substance: ATORVASTATIN CALCIUM
     Dosage: 10 MG, 1X/DAY
     Route: 048
  3. RAMIPRIL. [Concomitant]
     Active Substance: RAMIPRIL
     Dosage: 10 MG, 2X/DAY
     Route: 048
  4. SOMAVERT [Suspect]
     Active Substance: PEGVISOMANT
     Dosage: 10 MG, 1X/DAY
     Route: 058
  5. SOMAVERT [Suspect]
     Active Substance: PEGVISOMANT
     Dosage: 15 MG, 1X/DAY
     Route: 058
     Dates: start: 201505, end: 2019
  6. SYNTHROID [Concomitant]
     Active Substance: LEVOTHYROXINE SODIUM
     Dosage: 0.1 MG, 1X/DAY
     Route: 048
  7. TERAZOSIN [Concomitant]
     Active Substance: TERAZOSIN HYDROCHLORIDE
     Dosage: 0.5MG AM AND 1.0 MG PM, 1X/DAY
     Route: 048
  8. HYDROCHLOROTHIAZIDE. [Concomitant]
     Active Substance: HYDROCHLOROTHIAZIDE
     Dosage: 12.5 MG, 1X/DAY
     Route: 048
  9. SOMAVERT [Suspect]
     Active Substance: PEGVISOMANT
     Indication: ACROMEGALY
     Dosage: 10 MG, 1X/DAY
     Route: 058
     Dates: start: 20141125, end: 201505
  10. SOMAVERT [Suspect]
     Active Substance: PEGVISOMANT
     Dosage: 15 MG, 1X/DAY
     Route: 058
     Dates: start: 2019
  11. HYDROCHLOROTHIAZIDE. [Concomitant]
     Active Substance: HYDROCHLOROTHIAZIDE
     Dosage: 25 MG, UNK
  12. SANDOSTATIN [Concomitant]
     Active Substance: OCTREOTIDE ACETATE
     Dosage: 20 MG, MONTHLY
     Route: 030
  13. TYLENOL [Concomitant]
     Active Substance: ACETAMINOPHEN
     Dosage: 500 MG, AS NEEDED
     Route: 048

REACTIONS (4)
  - Product dose omission issue [Unknown]
  - Pituitary tumour benign [Recovering/Resolving]
  - Disease recurrence [Recovering/Resolving]
  - Osteoarthritis [Unknown]
